FAERS Safety Report 21690168 (Version 5)
Quarter: 2023Q1

REPORT INFORMATION
  Report Type: Report from Study
  Country: US (occurrence: US)
  Receive Date: 20221206
  Receipt Date: 20230216
  Transmission Date: 20230418
  Serious: No
  Sender: FDA-Public Use
  Company Number: US-002147023-NVSC2022US280311

PATIENT
  Sex: Female

DRUGS (1)
  1. TABRECTA [Suspect]
     Active Substance: CAPMATINIB
     Indication: Lung neoplasm malignant
     Dosage: 400 MG, BID
     Route: 048

REACTIONS (5)
  - Blood pressure decreased [Not Recovered/Not Resolved]
  - Dizziness [Not Recovered/Not Resolved]
  - Illness [Unknown]
  - Fluid retention [Unknown]
  - Nausea [Recovered/Resolved]
